FAERS Safety Report 19962507 (Version 1)
Quarter: 2021Q4

REPORT INFORMATION
  Report Type: Spontaneous
  Country: GB (occurrence: GB)
  Receive Date: 20211018
  Receipt Date: 20211018
  Transmission Date: 20220303
  Serious: Yes (Other)
  Sender: FDA-Public Use
  Company Number: GB-MHRA-EMIS-3003-E2D54F00-78AE-4906-A3ED-FCB3FF808F1F

PATIENT
  Age: 7 Year
  Sex: Female
  Weight: 25.86 kg

DRUGS (5)
  1. CLARITHROMYCIN [Suspect]
     Active Substance: CLARITHROMYCIN
     Indication: Product used for unknown indication
     Dosage: 3.75 MILLILITER, DAILY, FOR 7-10 DAYS
     Route: 065
     Dates: start: 20210927, end: 20210929
  2. AMOXICILLIN [Concomitant]
     Active Substance: AMOXICILLIN
     Indication: Lower respiratory tract infection
     Dosage: 10 MILLILITER, TID
     Route: 065
     Dates: start: 20210915
  3. DERMOL [Concomitant]
     Active Substance: BENZALKONIUM CHLORIDE\CHLORHEXIDINE HYDROCHLORIDE\ISOPROPYL MYRISTATE\PARAFFIN
     Indication: Product used for unknown indication
     Dosage: 500 MILLILITER, UNK
     Route: 065
     Dates: start: 20210901
  4. FLUCLOXACILLIN [Concomitant]
     Active Substance: FLUCLOXACILLIN
     Indication: Product used for unknown indication
     Dosage: 5 MILLILITER, QID
     Route: 065
     Dates: start: 20210929
  5. TRIMOVATE [Concomitant]
     Active Substance: CLOBETASONE BUTYRATE\NYSTATIN\OXYTETRACYCLINE CALCIUM
     Indication: Product used for unknown indication
     Dosage: 30 GRAM, DAILY, FOR 7-14 DAYS.
     Route: 065
     Dates: start: 20210901

REACTIONS (2)
  - Rash [Recovered/Resolved]
  - Paraesthesia oral [Recovered/Resolved]

NARRATIVE: CASE EVENT DATE: 20210928
